FAERS Safety Report 21813612 (Version 1)
Quarter: 2023Q1

REPORT INFORMATION
  Report Type: Spontaneous
  Country: US (occurrence: US)
  Receive Date: 20230103
  Receipt Date: 20230103
  Transmission Date: 20230418
  Serious: No
  Sender: FDA-Public Use
  Company Number: US-ABBVIE-4217915

PATIENT
  Age: 14 Year
  Sex: Male

DRUGS (2)
  1. RINVOQ [Suspect]
     Active Substance: UPADACITINIB
     Indication: Alopecia
     Dosage: 30 MILLIGRAM?FORM STRENGTH: 15 MILLIGRAM?MAINTENANCE DOSE
     Route: 048
  2. RINVOQ [Suspect]
     Active Substance: UPADACITINIB
     Indication: Alopecia
     Dosage: LOADING DOSE
     Route: 048

REACTIONS (3)
  - Haemoptysis [Unknown]
  - Off label use [Not Recovered/Not Resolved]
  - Chest pain [Unknown]
